FAERS Safety Report 20164888 (Version 2)
Quarter: 2021Q4

REPORT INFORMATION
  Report Type: Spontaneous
  Country: US (occurrence: US)
  Receive Date: 20211209
  Receipt Date: 20211210
  Transmission Date: 20220303
  Serious: Yes (Other)
  Sender: FDA-Public Use
  Company Number: US-GLAXOSMITHKLINE-US2021GSK252217

PATIENT
  Sex: Male

DRUGS (4)
  1. ZANTAC [Suspect]
     Active Substance: RANITIDINE HYDROCHLORIDE
     Indication: Prostatic disorder
     Dosage: UNK
     Route: 065
     Dates: start: 201401, end: 202001
  2. ZANTAC [Suspect]
     Active Substance: RANITIDINE HYDROCHLORIDE
     Indication: Prostatic disorder
     Dosage: UNK
     Route: 065
     Dates: start: 201401, end: 202001
  3. ZANTAC [Suspect]
     Active Substance: RANITIDINE HYDROCHLORIDE
     Indication: Prostatic disorder
     Dosage: UNK
     Route: 065
     Dates: start: 201401, end: 202001
  4. RANITIDINE [Suspect]
     Active Substance: RANITIDINE
     Indication: Prostatic disorder
     Dosage: UNK
     Route: 065
     Dates: start: 201401, end: 202001

REACTIONS (1)
  - Prostate cancer [Unknown]
